FAERS Safety Report 6418058-7 (Version None)
Quarter: 2009Q4

REPORT INFORMATION
  Report Type: 
  Country: None (occurrence: None)
  Receive Date: 20091026
  Receipt Date: 20091013
  Transmission Date: 20100525
  Serious: Yes (Disabling)
  Sender: FDA-Public Use
  Company Number: ADR36862009

PATIENT
  Age: 67 Year
  Sex: Female

DRUGS (6)
  1. SIMVASTATIN [Suspect]
     Indication: LIPIDS INCREASED
     Dosage: 40 MG THEN INCREASED TO 50 MG, ORAL
     Route: 048
     Dates: start: 20070403, end: 20070420
  2. SIMVASTATIN [Suspect]
     Indication: LIPIDS INCREASED
     Dosage: 40 MG THEN INCREASED TO 50 MG, ORAL
     Route: 048
     Dates: start: 20070402
  3. ASPIRIN [Concomitant]
  4. COMBIVENT [Concomitant]
  5. RAMIPRIL [Concomitant]
  6. RIMONABANT (20 MG) [Concomitant]

REACTIONS (5)
  - CEREBROVASCULAR ACCIDENT [None]
  - EMOTIONAL DISTRESS [None]
  - FALL [None]
  - HEADACHE [None]
  - SYNCOPE [None]
